FAERS Safety Report 9533108 (Version 1)
Quarter: 2013Q1

REPORT INFORMATION
  Report Type: Spontaneous
  Country: US (occurrence: None)
  Receive Date: 20130318
  Receipt Date: 20130318
  Transmission Date: 20140127
  Serious: Yes (Life-Threatening, Hospitalization)
  Sender: FDA-Public Use
  Company Number: E2020-11660-SPO-US

PATIENT
  Age: 76 Year
  Sex: Female
  Weight: 52 kg

DRUGS (1)
  1. ARICEPT [Suspect]
     Indication: DEMENTIA ALZHEIMER^S TYPE
     Route: 048
     Dates: start: 20121119, end: 20121121

REACTIONS (7)
  - Atrial fibrillation [None]
  - Somnolence [None]
  - Dizziness [None]
  - Abdominal discomfort [None]
  - Diarrhoea [None]
  - Vomiting [None]
  - Loss of consciousness [None]
